FAERS Safety Report 7281198-7 (Version None)
Quarter: 2011Q1

REPORT INFORMATION
  Report Type: 
  Country: None (occurrence: None)
  Receive Date: 20110208
  Receipt Date: 20110131
  Transmission Date: 20110831
  Serious: Yes (Death, Other)
  Sender: FDA-Public Use
  Company Number: CHPA2011US02061

PATIENT
  Age: 42 Year
  Sex: Female

DRUGS (7)
  1. DIPHENHYDRAMINE [Suspect]
     Route: 065
  2. OXYCODONE [Suspect]
     Route: 065
  3. CYCLOBENZAPRINE [Suspect]
     Route: 065
  4. FLUDROCORTISONE [Suspect]
     Route: 065
  5. METHADONE [Suspect]
     Route: 065
  6. BENZTROPINE MESYLATE [Suspect]
     Route: 065
  7. DOXEPIN [Suspect]
     Route: 065

REACTIONS (2)
  - CARDIO-RESPIRATORY ARREST [None]
  - DEATH [None]
